FAERS Safety Report 17251925 (Version 3)
Quarter: 2020Q3

REPORT INFORMATION
  Report Type: Spontaneous
  Country: GB (occurrence: GB)
  Receive Date: 20200109
  Receipt Date: 20200918
  Transmission Date: 20201102
  Serious: Yes (Death, Hospitalization, Other)
  Sender: FDA-Public Use
  Company Number: GB-AMGEN-GBRNI2019210047

PATIENT
  Age: 60 Year
  Sex: Female

DRUGS (33)
  1. PERTUZUMAB. [Suspect]
     Active Substance: PERTUZUMAB
     Indication: BREAST CANCER METASTATIC
     Dosage: 840 MILLIGRAM, Q3WK
     Route: 042
     Dates: start: 20151125, end: 20151125
  2. TRASTUZUMAB EMTANSINE [Suspect]
     Active Substance: ADO-TRASTUZUMAB EMTANSINE
     Indication: BREAST CANCER METASTATIC
     Dosage: 400 MILLIGRAM, Q3WK
     Route: 042
     Dates: start: 20190214, end: 20190602
  3. LETROZOLE. [Suspect]
     Active Substance: LETROZOLE
     Indication: BREAST CANCER METASTATIC
     Dosage: 2.5 MILLIGRAM, QD
     Route: 048
     Dates: start: 20150709, end: 20151015
  4. LANSOPRAZOLE. [Concomitant]
     Active Substance: LANSOPRAZOLE
     Indication: DYSPEPSIA
     Dosage: 30 MILLIGRAM, QD
     Route: 048
     Dates: start: 20190510
  5. DIFFLAM MOUTH [Concomitant]
     Dosage: 10 MILLILITER, QD
     Route: 048
     Dates: start: 20160411
  6. CO?AMOXICLAV [AMOXICILLIN;CLAVULANATE POTASSIUM] [Concomitant]
     Active Substance: AMOXICILLIN\CLAVULANATE POTASSIUM
     Dosage: 1.2 GRAM, QD
     Route: 042
     Dates: start: 20190613, end: 20190617
  7. DEXAMETHASONE. [Concomitant]
     Active Substance: DEXAMETHASONE
     Dosage: 8 MILLIGRAM
     Route: 048
     Dates: start: 20151125
  8. FUROSEMIDE. [Concomitant]
     Active Substance: FUROSEMIDE
     Dosage: 20 MILLIGRAM, QD
     Route: 048
     Dates: start: 20190703
  9. PERTUZUMAB. [Suspect]
     Active Substance: PERTUZUMAB
     Dosage: 420 MILLIGRAM, Q3WK
     Route: 042
     Dates: start: 20151215, end: 20181204
  10. DOCETAXEL. [Suspect]
     Active Substance: DOCETAXEL
     Indication: BREAST CANCER METASTATIC
     Dosage: 150 MILLIGRAM, Q3WK
     Route: 042
     Dates: start: 20151127, end: 20160308
  11. DOMPERIDONE [Concomitant]
     Active Substance: DOMPERIDONE
     Dosage: 10 MILLIGRAM
     Route: 048
     Dates: start: 20151126
  12. CO?AMOXICLAV [AMOXICILLIN;CLAVULANATE POTASSIUM] [Concomitant]
     Active Substance: AMOXICILLIN\CLAVULANATE POTASSIUM
     Dosage: 1875 MILLIGRAM, QD
     Route: 048
     Dates: start: 20151205, end: 20151208
  13. CO?AMOXICLAV [AMOXICILLIN;CLAVULANATE POTASSIUM] [Concomitant]
     Active Substance: AMOXICILLIN\CLAVULANATE POTASSIUM
     Dosage: 1875 MILLIGRAM, QD
     Route: 048
     Dates: start: 20190311, end: 20190317
  14. TRASTUZUMAB. [Suspect]
     Active Substance: TRASTUZUMAB
     Dosage: 672 MILLIGRAM, Q3WK
     Route: 042
     Dates: start: 20151217, end: 20181204
  15. LEVOFLOXACIN. [Concomitant]
     Active Substance: LEVOFLOXACIN
     Dosage: 500 MILLIGRAM
     Route: 048
     Dates: start: 20151130
  16. GENTAMICIN. [Concomitant]
     Active Substance: GENTAMICIN
     Dosage: 320 MILLIGRAM, QD
     Route: 042
     Dates: start: 20190617, end: 20190617
  17. TRASTUZUMAB. [Suspect]
     Active Substance: TRASTUZUMAB
     Indication: BREAST CANCER METASTATIC
     Dosage: 672 MILLIGRAM, Q3WK
     Route: 042
     Dates: start: 20151126, end: 20151126
  18. CALCICHEW [Concomitant]
     Active Substance: CALCIUM CARBONATE
     Dosage: 1.25 GRAM, QD
     Route: 048
     Dates: start: 20150723
  19. OSELTAMIVIR [Concomitant]
     Active Substance: OSELTAMIVIR
     Dosage: 150 MILLIGRAM, QD
     Route: 048
     Dates: start: 20190125, end: 20190130
  20. COLECALCIFEROL [Concomitant]
     Active Substance: CHOLECALCIFEROL
     Dosage: 1 UNK, QD
     Route: 048
     Dates: start: 20151203
  21. LOPERAMIDE [Concomitant]
     Active Substance: LOPERAMIDE
     Dosage: 2 MILLIGRAM
     Route: 048
     Dates: start: 20151126
  22. DALTEPARIN [Concomitant]
     Active Substance: DALTEPARIN
     Dosage: 2 UNK, QD
     Route: 058
     Dates: start: 20160421
  23. FLUCONAZOLE. [Concomitant]
     Active Substance: FLUCONAZOLE
     Dosage: 50 MILLIGRAM
     Route: 048
     Dates: start: 20151130
  24. LETROZOLE. [Suspect]
     Active Substance: LETROZOLE
     Indication: DYSPEPSIA
  25. OSELTAMIVIR [Concomitant]
     Active Substance: OSELTAMIVIR
     Dosage: 75 MILLIGRAM, QD
     Route: 048
     Dates: start: 20190125, end: 20190130
  26. CLARITHROMYCIN. [Concomitant]
     Active Substance: CLARITHROMYCIN
     Dosage: 500 MILLIGRAM, QD
     Route: 048
     Dates: start: 20190311, end: 20190317
  27. XGEVA [Concomitant]
     Active Substance: DENOSUMAB
     Dosage: 120 MILLIGRAM, QMO
     Route: 058
     Dates: start: 20150723
  28. XGEVA [Concomitant]
     Active Substance: DENOSUMAB
     Dosage: 70 MILLIGRAM, QMO
     Route: 058
     Dates: start: 20150820
  29. GENTAMICIN. [Concomitant]
     Active Substance: GENTAMICIN
     Dosage: 280 MILLIGRAM
     Route: 042
     Dates: start: 20151203, end: 20151203
  30. CLARITHROMYCIN. [Concomitant]
     Active Substance: CLARITHROMYCIN
     Dosage: 500 MILLIGRAM, QD
     Route: 042
     Dates: start: 20190614, end: 20190614
  31. CO?AMOXICLAV [AMOXICILLIN;CLAVULANATE POTASSIUM] [Concomitant]
     Active Substance: AMOXICILLIN\CLAVULANATE POTASSIUM
     Dosage: 1875 MILLIGRAM, QD
     Route: 048
     Dates: start: 20190125, end: 20190130
  32. IRON SULFATE [Concomitant]
     Active Substance: FERROUS SULFATE ANHYDROUS
     Indication: ANAEMIA
     Dosage: 200 MILLIGRAM, QD
     Route: 048
  33. TAZOCIN [Concomitant]
     Active Substance: PIPERACILLIN SODIUM\TAZOBACTAM SODIUM
     Dosage: 4.5 GRAM
     Route: 042
     Dates: start: 20151203, end: 20151205

REACTIONS (5)
  - Death [Fatal]
  - Pulmonary embolism [Recovered/Resolved]
  - Pneumonia [Recovered/Resolved with Sequelae]
  - Off label use [Unknown]
  - Pneumonitis [Recovered/Resolved]

NARRATIVE: CASE EVENT DATE: 20190602
